FAERS Safety Report 20308571 (Version 2)
Quarter: 2022Q2

REPORT INFORMATION
  Report Type: Report from Study
  Country: US (occurrence: US)
  Receive Date: 20220107
  Receipt Date: 20220401
  Transmission Date: 20220721
  Serious: No
  Sender: FDA-Public Use
  Company Number: US-NOVARTISTESTPH-NVSC2022US002095

PATIENT
  Age: 50 Year
  Sex: Female

DRUGS (1)
  1. COSENTYX [Suspect]
     Active Substance: SECUKINUMAB
     Indication: Psoriatic arthropathy
     Dosage: Q WEEK FOR FIVE WEEKS AND THEN Q FOUR
     Route: 058
     Dates: start: 20201001

REACTIONS (5)
  - Influenza like illness [Unknown]
  - Staphylococcal infection [Recovering/Resolving]
  - Bronchitis [Unknown]
  - Nasopharyngitis [Unknown]
  - Sinusitis [Unknown]

NARRATIVE: CASE EVENT DATE: 20210901
